FAERS Safety Report 8509793-5 (Version None)
Quarter: 2012Q3

REPORT INFORMATION
  Report Type: 
  Country: None (occurrence: None)
  Receive Date: 20120703
  Receipt Date: 20120618
  Transmission Date: 20120928
  Serious: Yes (Death)
  Sender: FDA-Public Use
  Company Number: 2012CP000066

PATIENT
  Age: 4 Year
  Sex: Female
  Weight: 16 kg

DRUGS (3)
  1. IBUPROFEN [Concomitant]
  2. ACETAMINOPHEN [Suspect]
     Indication: PYREXIA
     Dosage: 160 MG, 3/1 DAY, IV
     Route: 042
     Dates: start: 20120519, end: 20120520
  3. PENICILLIN G SODIUM [Suspect]
     Indication: TONSILLITIS
     Dosage: IV
     Route: 042
     Dates: start: 20120519, end: 20120520

REACTIONS (4)
  - SHOCK [None]
  - ANAPHYLACTIC REACTION [None]
  - CARDIO-RESPIRATORY ARREST [None]
  - CONVULSION [None]
